FAERS Safety Report 12341952 (Version 1)
Quarter: 2016Q2

REPORT INFORMATION
  Report Type: Spontaneous
  Country: US (occurrence: None)
  Receive Date: 20160505
  Receipt Date: 20160505
  Transmission Date: 20160815
  Serious: No
  Sender: FDA-Public Use
  Company Number: None

PATIENT
  Age: 73 Year
  Sex: Female

DRUGS (1)
  1. DALVANCE [Suspect]
     Active Substance: DALBAVANCIN
     Indication: INFECTION
     Dosage: X1 (NOT OTHERWISE SPECIFIED)
     Route: 042

REACTIONS (2)
  - Infusion related reaction [None]
  - Flank pain [None]

NARRATIVE: CASE EVENT DATE: 20160503
